FAERS Safety Report 24736437 (Version 1)
Quarter: 2024Q4

REPORT INFORMATION
  Report Type: Spontaneous
  Country: US (occurrence: US)
  Receive Date: 20241216
  Receipt Date: 20241216
  Transmission Date: 20250115
  Serious: No
  Sender: Unknown Manufacturer
  Company Number: US-STALCOR-2024-AER-02504

PATIENT
  Age: 67 Year
  Sex: Female

DRUGS (1)
  1. CANDIDA ALBICANS [Suspect]
     Active Substance: CANDIDA ALBICANS
     Indication: Skin papilloma
     Dates: start: 20241030

REACTIONS (6)
  - Overdose [Unknown]
  - Product strength confusion [Unknown]
  - Off label use [Unknown]
  - Administration site streaking [Unknown]
  - Swelling [Unknown]
  - Contusion [Unknown]

NARRATIVE: CASE EVENT DATE: 20241030
